FAERS Safety Report 4452772-8 (Version None)
Quarter: 2004Q3

REPORT INFORMATION
  Report Type: 
  Country: None (occurrence: None)
  Receive Date: 20040916
  Receipt Date: 20040906
  Transmission Date: 20050211
  Serious: Yes (Death, Other)
  Sender: FDA-Public Use
  Company Number: 2003125244

PATIENT
  Age: 14 Year
  Sex: Male
  Weight: 65 kg

DRUGS (5)
  1. VFEND [Suspect]
     Indication: ANTIFUNGAL PROPHYLAXIS
     Dosage: BID, INTRAVENOUS
     Route: 042
     Dates: start: 20030510, end: 20030912
  2. ANTIFUNGALS (ANTIFUNGALS) [Concomitant]
  3. CASPOFUNGIN (CASPOFUNGIN) [Concomitant]
  4. ITRACONAZOLE [Concomitant]
  5. IMMUNOSUPPRESSIVE AGENTS (IMMUNOSUPPRESSIVE AGENTS) [Concomitant]

REACTIONS (11)
  - ACUTE MYELOID LEUKAEMIA [None]
  - BRONCHOPULMONARY ASPERGILLOSIS [None]
  - CHEST PAIN [None]
  - CONDITION AGGRAVATED [None]
  - DISEASE RECURRENCE [None]
  - GRAFT VERSUS HOST DISEASE [None]
  - HAEMOPTYSIS [None]
  - LUNG INFILTRATION [None]
  - MUCORMYCOSIS [None]
  - PULMONARY HAEMORRHAGE [None]
  - PULMONARY NECROSIS [None]
